FAERS Safety Report 8097987-5 (Version None)
Quarter: 2012Q1

REPORT INFORMATION
  Report Type: 
  Country: None (occurrence: None)
  Receive Date: 20120128
  Receipt Date: 20110815
  Transmission Date: 20120608
  Serious: No
  Sender: FDA-Public Use
  Company Number: US-ABBOTT-11P-163-0846752-00

PATIENT
  Age: 28 Year
  Sex: Female

DRUGS (8)
  1. CLOBEX [Concomitant]
  2. SOLODYN [Concomitant]
     Indication: DERMATITIS
  3. ANTIBIOTICS [Concomitant]
     Indication: PRODUCT USED FOR UNKNOWN INDICATION
  4. FLONASE [Concomitant]
     Indication: HYPERSENSITIVITY
     Dosage: 2 SQUIRTS IN NOSTRILS USES 3-4 TIMES PER WEEK
  5. OLUX [Concomitant]
     Indication: PSORIASIS
     Dosage: FOAM
  6. CLOBEX [Concomitant]
     Indication: PRODUCT USED FOR UNKNOWN INDICATION
  7. HUMIRA [Suspect]
     Indication: PSORIASIS
     Dates: start: 20100501, end: 20100601
  8. VECTICAL [Concomitant]
     Indication: PSORIASIS

REACTIONS (8)
  - OESOPHAGEAL IRRITATION [None]
  - PLEURAL EFFUSION [None]
  - PHARYNGEAL OEDEMA [None]
  - HYPOPHAGIA [None]
  - HYPERSENSITIVITY [None]
  - BRONCHITIS [None]
  - PSORIASIS [None]
  - STREPTOCOCCAL INFECTION [None]
